FAERS Safety Report 10069329 (Version 2)
Quarter: 2014Q2

REPORT INFORMATION
  Report Type: Spontaneous
  Country: GB (occurrence: GB)
  Receive Date: 20140409
  Receipt Date: 20140409
  Transmission Date: 20141212
  Serious: Yes (Disabling)
  Sender: FDA-Public Use
  Company Number: PHFR2014GB002182

PATIENT
  Sex: Male

DRUGS (13)
  1. CLOZARIL [Suspect]
     Dosage: 500 MG, UNK
     Route: 048
     Dates: start: 20110914, end: 20140214
  2. AMISULPRIDE [Concomitant]
     Indication: SCHIZOPHRENIA
     Dosage: 300 MG, UNK
     Route: 048
  3. LORAZEPAM [Concomitant]
     Indication: ANXIETY
     Dosage: UNK MG, PRN (0.5 TO 1 MG, MAX 4 MG)
     Route: 048
  4. LORAZEPAM [Concomitant]
     Indication: AGITATION
  5. FERROUS SULPHATE [Concomitant]
     Indication: IRON DEFICIENCY
     Dosage: 400 MG, UNK
     Route: 048
  6. OMEPRAZOLE [Concomitant]
     Dosage: 20 MG, UNK
     Route: 048
  7. EUCERIN [Concomitant]
     Dosage: UNK UKN, TID
  8. BETNEVATE [Concomitant]
     Dosage: UNK UKN, TID
  9. KETOCONAZOLE [Concomitant]
     Indication: ECZEMA
     Dosage: UNK UKN, UNK
  10. ELOCON [Concomitant]
     Dosage: UNK UKN, UNK
  11. VENTOLIN//SALBUTAMOL [Concomitant]
     Indication: ASTHMA
     Dosage: 2 DF, ((2 PUFFS, QDS PRN)
     Route: 055
  12. ZOPICLONE [Concomitant]
     Indication: INSOMNIA
     Dosage: 7.5 MG, QHS
  13. DOCUSATE SODIUM [Concomitant]
     Indication: CONSTIPATION
     Dosage: 100 MG, UNK
     Route: 048
     Dates: start: 20111123

REACTIONS (5)
  - Abdominal pain [Unknown]
  - Constipation [Recovered/Resolved]
  - Abdominal discomfort [Recovered/Resolved]
  - Anxiety [Unknown]
  - Fear [Unknown]
